FAERS Safety Report 20089104 (Version 3)
Quarter: 2021Q4

REPORT INFORMATION
  Report Type: Other
  Country: GB (occurrence: GB)
  Receive Date: 20211119
  Receipt Date: 20211125
  Transmission Date: 20220303
  Serious: Yes (Hospitalization, Other)
  Sender: FDA-Public Use
  Company Number: GB-CELLTRION INC.-2021GB015575

PATIENT

DRUGS (14)
  1. INFLIXIMAB [Suspect]
     Active Substance: INFLIXIMAB
     Indication: Colitis ulcerative
     Dosage: 10 MG/KG, BID, (PHARMACEUTICAL DOSE FORM:356)
     Route: 065
     Dates: start: 202010
  2. INFLIXIMAB [Suspect]
     Active Substance: INFLIXIMAB
     Dosage: 10 MG/KG (2 DOSES) (PHARMACEUTICAL DOSE FORM: 194)
     Route: 065
     Dates: start: 202010
  3. INFLIXIMAB [Suspect]
     Active Substance: INFLIXIMAB
     Dosage: UNK EXTRA DOSE (DOSE 4) (PHARMACEUTICAL DOSE FORM: 356)
     Route: 058
     Dates: start: 20201229
  4. INFLIXIMAB [Suspect]
     Active Substance: INFLIXIMAB
     Dosage: UNK EXTRA DOSE (DOSE 4) (PHARMACEUTICAL DOSE FORM: 356)
     Route: 042
     Dates: start: 20201229
  5. INFLIXIMAB [Suspect]
     Active Substance: INFLIXIMAB
     Dosage: AN EXTRA 4 DOSES, UNKNOWN (PHARMACEUTICAL DOSE FORM 194)
     Route: 042
     Dates: start: 20201229
  6. INFLIXIMAB [Suspect]
     Active Substance: INFLIXIMAB
     Dosage: EXTRA 4 DOSES, UNKNOWN (PHARMACEUTICAL DOSE FORM 194)
     Route: 058
     Dates: start: 20201229
  7. MESALAMINE [Concomitant]
     Active Substance: MESALAMINE
     Indication: Product used for unknown indication
     Dosage: UNK
     Route: 065
     Dates: start: 2013, end: 20201207
  8. MESALAMINE [Concomitant]
     Active Substance: MESALAMINE
     Dosage: UNK
     Route: 065
     Dates: start: 20201207
  9. MESALAMINE [Concomitant]
     Active Substance: MESALAMINE
     Dosage: UNK
     Dates: start: 20201229
  10. AZATHIOPRINE [Concomitant]
     Active Substance: AZATHIOPRINE
     Indication: Product used for unknown indication
     Dosage: 75 MG, QD
     Route: 065
  11. PREDNISOLONE [Concomitant]
     Active Substance: PREDNISOLONE
     Indication: Product used for unknown indication
     Dosage: 15 MG, 1X/DAY
     Route: 065
  12. PREDNISOLONE [Concomitant]
     Active Substance: PREDNISOLONE
     Dosage: 40 MG, 1X/DAY, REDUCING OVER 8 WEEKS
     Route: 065
     Dates: start: 2013
  13. ASTRAZENECA COVID-19 VACCINE [Concomitant]
     Active Substance: AZD-1222
     Indication: COVID-19 immunisation
     Dosage: UNK UNK, SINGLE
     Dates: start: 20210219, end: 20210219
  14. ASTRAZENECA COVID-19 VACCINE [Concomitant]
     Active Substance: AZD-1222
     Dosage: DOSE NUMBER UNKNOWN, SINGLE
     Dates: start: 20210209, end: 20210209

REACTIONS (16)
  - C-reactive protein increased [Recovered/Resolved]
  - Colitis ulcerative [Recovered/Resolved]
  - Colitis ulcerative [Unknown]
  - Faecal calprotectin increased [Recovered/Resolved]
  - Resting tremor [Unknown]
  - Stress [Unknown]
  - Frequent bowel movements [Recovered/Resolved]
  - Asthenia [Recovering/Resolving]
  - Fatigue [Unknown]
  - Hyperhidrosis [Recovered/Resolved]
  - Pyrexia [Recovered/Resolved]
  - Extra dose administered [Unknown]
  - Off label use [Unknown]
  - Off label use [Unknown]
  - Off label use [Unknown]
  - Overdose [Unknown]

NARRATIVE: CASE EVENT DATE: 20201001
